FAERS Safety Report 5511604-7 (Version None)
Quarter: 2007Q4

REPORT INFORMATION
  Report Type: 
  Country: None (occurrence: None)
  Receive Date: 20071109
  Receipt Date: 20071031
  Transmission Date: 20080405
  Serious: Yes (Hospitalization, Other)
  Sender: FDA-Public Use
  Company Number: US-GILEAD-2007-0014117

PATIENT
  Sex: Male
  Weight: 115.77 kg

DRUGS (3)
  1. ATRIPLA [Suspect]
     Indication: HIV INFECTION
     Route: 065
     Dates: start: 20071002
  2. BACTRIM [Concomitant]
     Indication: RECTAL ABSCESS
     Dates: start: 20071002
  3. VITAMINS [Concomitant]
     Route: 065

REACTIONS (1)
  - GALLBLADDER DISORDER [None]
